FAERS Safety Report 18532280 (Version 4)
Quarter: 2020Q4

REPORT INFORMATION
  Report Type: Spontaneous
  Country: IT (occurrence: IT)
  Receive Date: 20201123
  Receipt Date: 20201211
  Transmission Date: 20210114
  Serious: Yes (Hospitalization, Other)
  Sender: FDA-Public Use
  Company Number: IT-AUROBINDO-AUR-APL-2020-057285

PATIENT
  Age: 24 Year
  Sex: Female

DRUGS (2)
  1. LINEZOLID 600 MG [Suspect]
     Active Substance: LINEZOLID
     Indication: PNEUMONIA STAPHYLOCOCCAL
     Dosage: 600 MILLIGRAM, TWO TIMES A DAY (1 DF)
     Route: 065
  2. LINEZOLID 600 MG [Suspect]
     Active Substance: LINEZOLID
     Dosage: 1 DOSAGE FORM, TWO TIMES A DAY
     Route: 042
     Dates: start: 20120430, end: 20120430

REACTIONS (7)
  - Rhabdomyolysis [Recovered/Resolved]
  - Quadriplegia [Recovered/Resolved]
  - Lactic acidosis [Recovered/Resolved]
  - Glomerular filtration rate decreased [Recovering/Resolving]
  - Blood creatinine increased [Recovering/Resolving]
  - Hypotonia [Recovered/Resolved]
  - Renal failure [Recovered/Resolved]

NARRATIVE: CASE EVENT DATE: 20120430
